FAERS Safety Report 12725014 (Version 1)
Quarter: 2016Q3

REPORT INFORMATION
  Report Type: Spontaneous
  Country: US (occurrence: US)
  Receive Date: 20160908
  Receipt Date: 20160908
  Transmission Date: 20161109
  Serious: Yes (Hospitalization)
  Sender: FDA-Public Use
  Company Number: US-PFIZER INC-2016417088

PATIENT
  Age: 37 Year
  Sex: Male
  Weight: 108.86 kg

DRUGS (4)
  1. KAOPECTATE REGULAR STRENGTH CHERRY FLAVOR [Concomitant]
     Active Substance: BISMUTH SUBSALICYLATE
     Indication: DIARRHOEA
     Dosage: RECOMMENDED DOSAGE
  2. ADVIL [Suspect]
     Active Substance: IBUPROFEN
     Indication: HEADACHE
     Dosage: 200 MG, UNK
     Route: 048
  3. BACTRIM [Concomitant]
     Active Substance: SULFAMETHOXAZOLE\TRIMETHOPRIM
     Indication: PROSTATE INFECTION
     Dosage: 1 TABLET TWICE A DAY BY MOUTH
     Route: 048
     Dates: start: 20160822, end: 20160828
  4. MEDROL DOSE PACK [Concomitant]
     Active Substance: METHYLPREDNISOLONE
     Indication: RASH
     Dosage: TITRATING DOSE, DOSE UNKNOWN
     Dates: start: 201608, end: 20160828

REACTIONS (6)
  - Ulcer [Recovering/Resolving]
  - Abdominal pain [Recovered/Resolved]
  - White blood cell count increased [Recovered/Resolved]
  - Diarrhoea [Recovering/Resolving]
  - Lipids increased [Recovered/Resolved]
  - Hepatic lesion [Recovered/Resolved]

NARRATIVE: CASE EVENT DATE: 201608
